FAERS Safety Report 8789819 (Version 5)
Quarter: 2013Q2

REPORT INFORMATION
  Report Type: Spontaneous
  Country: US (occurrence: US)
  Receive Date: 20120917
  Receipt Date: 20130528
  Transmission Date: 20140414
  Serious: No
  Sender: FDA-Public Use
  Company Number: US-009507513-1208USA012139

PATIENT
  Sex: Female

DRUGS (5)
  1. VICTRELIS [Suspect]
     Indication: HEPATITIS C
     Dosage: UNK
     Dates: start: 20120717, end: 20121231
  2. REBETOL [Suspect]
     Indication: HEPATITIS C
     Dosage: 3 IN THE EVENING AND 3 IN THE MORNING
     Dates: start: 20120619, end: 20121231
  3. REBETOL [Suspect]
     Dosage: 3 DF, QD
     Dates: start: 201209, end: 2012
  4. REBETOL [Suspect]
     Dosage: 3 IN THE EVENING AND 3 IN THE MORNING
     Dates: start: 2012
  5. PEGASYS [Suspect]
     Indication: HEPATITIS C
     Dosage: UNK
     Dates: start: 20120619, end: 20121231

REACTIONS (18)
  - Blood count abnormal [Unknown]
  - Blood glucose decreased [Unknown]
  - Heart rate increased [Unknown]
  - Dyspnoea [Unknown]
  - Stomatitis [Unknown]
  - Headache [Unknown]
  - Anxiety [Unknown]
  - Anxiety [Unknown]
  - Fatigue [Unknown]
  - Insomnia [Unknown]
  - Dry mouth [Unknown]
  - Nausea [Unknown]
  - Asthenia [Unknown]
  - Insomnia [Unknown]
  - Anaemia [Unknown]
  - Weight decreased [Unknown]
  - Groin pain [Unknown]
  - Pain in extremity [Unknown]
